FAERS Safety Report 12567529 (Version 1)
Quarter: 2016Q3

REPORT INFORMATION
  Report Type: Spontaneous
  Country: US (occurrence: US)
  Receive Date: 20160718
  Receipt Date: 20160718
  Transmission Date: 20161109
  Serious: Yes (Hospitalization)
  Sender: FDA-Public Use
  Company Number: US-IPCA LABORATORIES LIMITED-IPC201607-000599

PATIENT
  Age: 79 Year
  Sex: Female

DRUGS (2)
  1. WARFARIN [Suspect]
     Active Substance: WARFARIN
     Indication: DEEP VEIN THROMBOSIS
  2. ENOXAPARIN [Suspect]
     Active Substance: ENOXAPARIN
     Indication: DEEP VEIN THROMBOSIS

REACTIONS (5)
  - Pelvic haematoma [Unknown]
  - Tachycardia [Unknown]
  - Hypotension [Unknown]
  - Hypovolaemic shock [Unknown]
  - Intra-abdominal haematoma [Unknown]
